FAERS Safety Report 24689940 (Version 1)
Quarter: 2024Q4

REPORT INFORMATION
  Report Type: Spontaneous
  Country: HR (occurrence: HR)
  Receive Date: 20241203
  Receipt Date: 20241203
  Transmission Date: 20250115
  Serious: Yes (Life-Threatening, Hospitalization, Other)
  Sender: SERVIER
  Company Number: None

PATIENT

DRUGS (1)
  1. ONCASPAR [Suspect]
     Active Substance: PEGASPARGASE
     Indication: Precursor T-lymphoblastic lymphoma/leukaemia stage III
     Dosage: 2000 IU IN 100 ML F.O. THROUGH 90 MIN
     Route: 042
     Dates: start: 20230905, end: 20240830

REACTIONS (26)
  - Pancreatitis acute [Not Recovered/Not Resolved]
  - Abdominal pain [Unknown]
  - Haemodynamic instability [Unknown]
  - Hypotension [Unknown]
  - Tachycardia [Unknown]
  - General physical health deterioration [Not Recovered/Not Resolved]
  - Ocular icterus [Unknown]
  - Yellow skin [Unknown]
  - Oedema peripheral [Unknown]
  - Amylase increased [Unknown]
  - Lipase increased [Unknown]
  - Pancreatitis necrotising [Not Recovered/Not Resolved]
  - Hepatic enzyme abnormal [Unknown]
  - Blood bilirubin increased [Unknown]
  - Blood lactate dehydrogenase increased [Unknown]
  - Thrombocytopenia [Recovered/Resolved]
  - Metabolic acidosis [Unknown]
  - Inflammatory marker increased [Unknown]
  - Acute kidney injury [Unknown]
  - Hyperkalaemia [Unknown]
  - Splenic infarction [Not Recovered/Not Resolved]
  - Acute respiratory failure [Unknown]
  - Intra-abdominal fluid collection [Unknown]
  - Hypofibrinogenaemia [Recovered/Resolved]
  - Splenic vein thrombosis [Unknown]
  - Abdominal pain upper [Unknown]

NARRATIVE: CASE EVENT DATE: 20240901
